FAERS Safety Report 6517229-9 (Version None)
Quarter: 2009Q4

REPORT INFORMATION
  Report Type: 
  Country: None (occurrence: None)
  Receive Date: 20091217
  Receipt Date: 20090520
  Transmission Date: 20100525
  Serious: Yes (Other)
  Sender: FDA-Public Use
  Company Number: 634673

PATIENT
  Age: 54 Year
  Sex: Female

DRUGS (1)
  1. TAMIFLU [Suspect]
     Indication: INFLUENZA
     Dosage: 75 MG 2 PER DAY ORAL
     Route: 048
     Dates: start: 20090519, end: 20090520

REACTIONS (3)
  - LIP SWELLING [None]
  - OEDEMA MOUTH [None]
  - URTICARIA [None]
